FAERS Safety Report 8454695-6 (Version None)
Quarter: 2012Q2

REPORT INFORMATION
  Report Type: 
  Country: None (occurrence: None)
  Receive Date: 20120615
  Receipt Date: 20120615
  Transmission Date: 20120825
  Serious: Yes (Other)
  Sender: FDA-Public Use
  Company Number: None

PATIENT
  Age: 56 Year
  Sex: Male

DRUGS (8)
  1. ALLOPURINOL [Concomitant]
  2. ASPIRIN [Concomitant]
  3. LIPITOR [Concomitant]
  4. METOPROLOL TARTRATE [Concomitant]
  5. DILTIAZEM HYDROCHOLORIDE [Concomitant]
  6. LOVAZA [Concomitant]
  7. SUTENT [Suspect]
     Dosage: 50MG QD PO
     Route: 048
     Dates: start: 20120605
  8. OMEPRAZOLE [Concomitant]

REACTIONS (2)
  - HEADACHE [None]
  - PHOTOPSIA [None]
